FAERS Safety Report 15937732 (Version 1)
Quarter: 2019Q1

REPORT INFORMATION
  Report Type: Spontaneous
  Country: US (occurrence: US)
  Receive Date: 20190208
  Receipt Date: 20190208
  Transmission Date: 20190417
  Serious: No
  Sender: FDA-Public Use
  Company Number: US-AEGERION PHARMACEUTICAL, INC-AEGR004033

PATIENT
  Sex: Female
  Weight: 10.88 kg

DRUGS (2)
  1. MYALEPT [Suspect]
     Active Substance: METRELEPTIN
     Dosage: 0.44MG( 0.04 MG/KG), QD
     Route: 058
     Dates: start: 201811
  2. MYALEPT [Suspect]
     Active Substance: METRELEPTIN
     Indication: CONGENITAL GENERALISED LIPODYSTROPHY
     Dosage: 0.66MG (0.06 MG/KG), QD
     Route: 058
     Dates: start: 201711

REACTIONS (7)
  - Weight abnormal [Unknown]
  - Decreased appetite [Unknown]
  - Laboratory test abnormal [Unknown]
  - Developmental delay [Unknown]
  - Product dose omission [Recovered/Resolved]
  - Weight gain poor [Unknown]
  - Underweight [Unknown]

NARRATIVE: CASE EVENT DATE: 2018
